FAERS Safety Report 8077725-2 (Version None)
Quarter: 2012Q1

REPORT INFORMATION
  Report Type: 
  Country: None (occurrence: None)
  Receive Date: 20120127
  Receipt Date: 20120127
  Transmission Date: 20120608
  Serious: Yes (Hospitalization, Other)
  Sender: FDA-Public Use
  Company Number: US-PFIZER INC-2012018549

PATIENT
  Sex: Male
  Weight: 99.8 kg

DRUGS (3)
  1. CHANTIX [Suspect]
     Indication: SMOKING CESSATION THERAPY
     Dosage: 0.5 MG, DAILY
     Dates: start: 20100801, end: 20100101
  2. CHANTIX [Suspect]
     Dosage: UNK
     Dates: start: 20100101
  3. CHANTIX [Suspect]
     Dosage: 1 MG, 2X/DAY
     Route: 048
     Dates: start: 20120118

REACTIONS (5)
  - ANGER [None]
  - SPINAL DEFORMITY CORRECTION [None]
  - DEEP VEIN THROMBOSIS [None]
  - BIPOLAR DISORDER [None]
  - HOSTILITY [None]
